FAERS Safety Report 14409320 (Version 3)
Quarter: 2018Q2

REPORT INFORMATION
  Report Type: Spontaneous
  Country: BR (occurrence: BR)
  Receive Date: 20180119
  Receipt Date: 20180518
  Transmission Date: 20180711
  Serious: No
  Sender: FDA-Public Use
  Company Number: BR-B.I. PHARMACEUTICALS,INC./RIDGEFIELD-2018-BI-002499

PATIENT
  Sex: Male
  Weight: 75 kg

DRUGS (8)
  1. JARDIANCE [Suspect]
     Active Substance: EMPAGLIFLOZIN
     Indication: TYPE 2 DIABETES MELLITUS
     Route: 048
     Dates: start: 201709
  2. METFORMINA [Concomitant]
     Active Substance: METFORMIN HYDROCHLORIDE
     Indication: DIABETES MELLITUS
     Route: 048
  3. GLIFAGE [Concomitant]
     Active Substance: METFORMIN HYDROCHLORIDE
     Indication: DIABETES MELLITUS
     Route: 048
  4. TRAYENTA [Suspect]
     Active Substance: LINAGLIPTIN
     Route: 048
     Dates: start: 201711, end: 201802
  5. TRAYENTA [Suspect]
     Active Substance: LINAGLIPTIN
     Indication: TYPE 2 DIABETES MELLITUS
     Route: 048
     Dates: start: 201709, end: 201711
  6. LOSARTANA [Concomitant]
     Active Substance: LOSARTAN
     Indication: HYPERTENSION
     Route: 048
  7. HIDROCLOROTIAZIDA [Concomitant]
     Active Substance: HYDROCHLOROTHIAZIDE
     Indication: DIURETIC THERAPY
     Route: 048
     Dates: end: 20180111
  8. TRAYENTA [Suspect]
     Active Substance: LINAGLIPTIN
     Route: 048
     Dates: start: 20171219

REACTIONS (8)
  - Hypotension [Not Recovered/Not Resolved]
  - Off label use [Recovered/Resolved]
  - Gastrooesophageal reflux disease [Recovered/Resolved]
  - Fatigue [Recovered/Resolved]
  - Hypotension [Recovered/Resolved]
  - Pollakiuria [Not Recovered/Not Resolved]
  - Throat irritation [Not Recovered/Not Resolved]
  - Eyelid ptosis [Unknown]

NARRATIVE: CASE EVENT DATE: 2002
